FAERS Safety Report 25265716 (Version 1)
Quarter: 2025Q2

REPORT INFORMATION
  Report Type: Spontaneous
  Country: IT (occurrence: IT)
  Receive Date: 20250503
  Receipt Date: 20250503
  Transmission Date: 20250716
  Serious: Yes (Other)
  Sender: AUROBINDO
  Company Number: IT-AUROBINDO-AUR-APL-2023-052815

PATIENT
  Age: 39 Year
  Sex: Male

DRUGS (6)
  1. PRAMIPEXOLE [Suspect]
     Active Substance: PRAMIPEXOLE
     Indication: Parkinson^s disease
     Route: 065
  2. LEVODOPA [Suspect]
     Active Substance: LEVODOPA
     Indication: Parkinson^s disease
     Route: 065
  3. BENSERAZIDE\LEVODOPA [Concomitant]
     Active Substance: BENSERAZIDE\LEVODOPA
     Indication: Surgical preconditioning
     Route: 065
  4. PRAMIPEXOLE [Concomitant]
     Active Substance: PRAMIPEXOLE
     Indication: Surgical preconditioning
     Route: 065
  5. RASAGILINE [Concomitant]
     Active Substance: RASAGILINE
     Indication: Surgical preconditioning
     Route: 065
  6. AMANTADINE [Concomitant]
     Active Substance: AMANTADINE
     Indication: Surgical preconditioning
     Route: 065

REACTIONS (6)
  - Dystonia [Recovered/Resolved]
  - Hypersexuality [Recovered/Resolved]
  - Dyskinesia [Recovering/Resolving]
  - On and off phenomenon [Recovering/Resolving]
  - Balance disorder [Recovered/Resolved]
  - Gambling [Recovered/Resolved]

NARRATIVE: CASE EVENT DATE: 20050101
